FAERS Safety Report 24391795 (Version 1)
Quarter: 2024Q4

REPORT INFORMATION
  Report Type: Spontaneous
  Country: US (occurrence: US)
  Receive Date: 20241003
  Receipt Date: 20241003
  Transmission Date: 20250115
  Serious: Yes (Other)
  Sender: Unknown Manufacturer
  Company Number: US-KOANAAP-SML-US-2024-00991

PATIENT
  Age: 33 Year
  Sex: Female

DRUGS (2)
  1. BORTEZOMIB [Suspect]
     Active Substance: BORTEZOMIB
     Indication: Prophylaxis against transplant rejection
  2. BORTEZOMIB [Suspect]
     Active Substance: BORTEZOMIB
     Indication: Prophylaxis against transplant rejection

REACTIONS (1)
  - Drug ineffective [Recovering/Resolving]
